FAERS Safety Report 9128073 (Version 1)
Quarter: 2013Q1

REPORT INFORMATION
  Report Type: Report from Study
  Country: US (occurrence: US)
  Receive Date: 20130125
  Receipt Date: 20130125
  Transmission Date: 20140127
  Serious: Yes (Hospitalization, Other)
  Sender: FDA-Public Use
  Company Number: US-ROCHE-1180611

PATIENT
  Sex: Female
  Weight: 98 kg

DRUGS (6)
  1. RITUXAN [Suspect]
     Indication: VASCULITIS
     Dosage: IN 5 % DEXTROSE IN 500 ML WATER
     Route: 042
  2. RITUXAN [Suspect]
     Route: 042
     Dates: start: 200808, end: 20130111
  3. NORVASC [Concomitant]
     Indication: HYPERTENSION
     Route: 048
     Dates: start: 20120727
  4. IMURAN [Concomitant]
     Indication: HEPATITIS
     Route: 048
     Dates: start: 20120727
  5. LISINOPRIL [Concomitant]
     Indication: HYPERTENSION
     Route: 048
     Dates: start: 20120702
  6. LUMINAL [Concomitant]
     Indication: CONVULSION
     Route: 048
     Dates: start: 20120702

REACTIONS (5)
  - Dizziness [Unknown]
  - Dizziness [Recovered/Resolved]
  - Mental status changes [Recovered/Resolved]
  - Urticaria [Recovered/Resolved]
  - Wheezing [Recovered/Resolved]
